FAERS Safety Report 20968867 (Version 16)
Quarter: 2024Q2

REPORT INFORMATION
  Report Type: Spontaneous
  Country: US (occurrence: US)
  Receive Date: 20220616
  Receipt Date: 20240510
  Transmission Date: 20240716
  Serious: Yes (Other)
  Sender: FDA-Public Use
  Company Number: US-PFIZER INC-202200810455

PATIENT
  Age: 68 Year
  Sex: Female
  Weight: 90.72 kg

DRUGS (2)
  1. ESTRING [Suspect]
     Active Substance: ESTRADIOL
     Indication: Menopausal symptoms
     Dosage: UNK
  2. PROMETRIUM [Concomitant]
     Active Substance: PROGESTERONE
     Dosage: UNK

REACTIONS (8)
  - Eye operation [Unknown]
  - Vision blurred [Unknown]
  - Mental impairment [Unknown]
  - Therapeutic response unexpected [Unknown]
  - Withdrawal syndrome [Unknown]
  - Affective disorder [Not Recovered/Not Resolved]
  - Headache [Unknown]
  - Malaise [Unknown]

NARRATIVE: CASE EVENT DATE: 20230101
